FAERS Safety Report 11231982 (Version 1)
Quarter: 2015Q3

REPORT INFORMATION
  Report Type: Spontaneous
  Country: JP (occurrence: JP)
  Receive Date: 20150701
  Receipt Date: 20150701
  Transmission Date: 20151125
  Serious: Yes (Other)
  Sender: FDA-Public Use
  Company Number: JP-PFIZER INC-2015213234

PATIENT
  Sex: Male

DRUGS (2)
  1. SOLANAX [Suspect]
     Active Substance: ALPRAZOLAM
     Dosage: UNK
     Route: 048
     Dates: end: 201506
  2. ROHYPNOL [Concomitant]
     Active Substance: FLUNITRAZEPAM
     Dosage: UNK

REACTIONS (8)
  - Seizure [Unknown]
  - Head injury [Unknown]
  - Blood triglycerides increased [Unknown]
  - Gamma-glutamyltransferase increased [Unknown]
  - Urinary incontinence [Unknown]
  - Aspartate aminotransferase increased [Unknown]
  - Fall [Unknown]
  - Alanine aminotransferase increased [Unknown]

NARRATIVE: CASE EVENT DATE: 201506
